FAERS Safety Report 13871522 (Version 1)
Quarter: 2017Q3

REPORT INFORMATION
  Report Type: Spontaneous
  Country: US (occurrence: US)
  Receive Date: 20170814
  Receipt Date: 20170814
  Transmission Date: 20171127
  Serious: No
  Sender: FDA-Public Use
  Company Number: None

PATIENT
  Age: 61 Year
  Sex: Female
  Weight: 67.95 kg

DRUGS (6)
  1. BOTOX [Suspect]
     Active Substance: ONABOTULINUMTOXINA
     Indication: SKIN WRINKLING
     Route: 058
  2. MULTI VITAMIN [Concomitant]
     Active Substance: VITAMINS
  3. CALCIUM [Concomitant]
     Active Substance: CALCIUM
  4. COQ10 [Concomitant]
     Active Substance: UBIDECARENONE
  5. VITAMIN B12 [Concomitant]
     Active Substance: CYANOCOBALAMIN
  6. MAGNESIUM [Concomitant]
     Active Substance: MAGNESIUM

REACTIONS (1)
  - Depression [None]

NARRATIVE: CASE EVENT DATE: 20160520
